FAERS Safety Report 6191013-0 (Version None)
Quarter: 2009Q2

REPORT INFORMATION
  Report Type: 
  Country: None (occurrence: None)
  Receive Date: 20090513
  Receipt Date: 20090428
  Transmission Date: 20091009
  Serious: Yes (Death, Hospitalization)
  Sender: FDA-Public Use
  Company Number: ALA_00231_2009

PATIENT
  Sex: Female
  Weight: 48.0813 kg

DRUGS (6)
  1. REGLAN [Suspect]
     Indication: DIABETIC GASTROPARESIS
     Dosage: (10 MG QID ORAL), (5 MG QID ORAL)
     Route: 048
     Dates: start: 20080301, end: 20080901
  2. REGLAN [Suspect]
     Indication: DIABETIC GASTROPARESIS
     Dosage: (10 MG QID ORAL), (5 MG QID ORAL)
     Route: 048
     Dates: start: 20080901, end: 20081101
  3. UNSPECIFIED ORAL HYPOGLYCEMIC [Concomitant]
  4. DARVOCET /00220901/ [Concomitant]
  5. SELECTIVE BETA-2-ADRENORECEPTOR AGONISTS [Concomitant]
  6. MYSOLINE [Concomitant]

REACTIONS (18)
  - ABASIA [None]
  - ANXIETY [None]
  - ASTHENIA [None]
  - BLOOD POTASSIUM INCREASED [None]
  - BLOOD PRESSURE INCREASED [None]
  - CARDIO-RESPIRATORY ARREST [None]
  - CONDITION AGGRAVATED [None]
  - CONVULSION [None]
  - DEPRESSION [None]
  - DIABETES MELLITUS INADEQUATE CONTROL [None]
  - HEADACHE [None]
  - IMPAIRED GASTRIC EMPTYING [None]
  - INSOMNIA [None]
  - LOSS OF CONSCIOUSNESS [None]
  - MUSCULAR WEAKNESS [None]
  - NECK PAIN [None]
  - TREMOR [None]
  - WHITE BLOOD CELL COUNT INCREASED [None]
